FAERS Safety Report 6433331-4 (Version None)
Quarter: 2009Q4

REPORT INFORMATION
  Report Type: 
  Country: None (occurrence: None)
  Receive Date: 20091109
  Receipt Date: 20091101
  Transmission Date: 20100525
  Serious: Yes (Other)
  Sender: FDA-Public Use
  Company Number: US-GENENTECH-293426

PATIENT

DRUGS (7)
  1. BEVACIZUMAB [Suspect]
     Indication: BREAST CANCER
     Dosage: 10 MG/KG, UNK
     Route: 042
     Dates: start: 20090908
  2. DOXORUBICIN HCL [Suspect]
     Indication: BREAST CANCER
     Dosage: 60 MG/M2, UNK
     Route: 042
     Dates: start: 20090908
  3. CYCLOPHOSPHAMIDE [Suspect]
     Indication: BREAST CANCER
     Dosage: 600 MG/M2, UNK
     Route: 042
     Dates: start: 20090908
  4. PEGFILGRASTIM [Suspect]
     Indication: BREAST CANCER
     Dosage: 6 MG, UNK
     Route: 042
     Dates: start: 20090908
  5. ACETAMINOPHEN [Concomitant]
     Indication: DRUG USE FOR UNKNOWN INDICATION
  6. ACETAMINOPHEN AND HYDROCODONE BITARTRATE [Concomitant]
     Indication: DRUG USE FOR UNKNOWN INDICATION
  7. MOTRIN [Concomitant]
     Indication: DRUG USE FOR UNKNOWN INDICATION

REACTIONS (1)
  - ALANINE AMINOTRANSFERASE INCREASED [None]
